FAERS Safety Report 11593453 (Version 1)
Quarter: 2015Q4

REPORT INFORMATION
  Report Type: Spontaneous
  Country: US (occurrence: US)
  Receive Date: 20151005
  Receipt Date: 20151005
  Transmission Date: 20160304
  Serious: Yes (Hospitalization, Other)
  Sender: FDA-Public Use
  Company Number: US-AMGEN-USASP2015102035

PATIENT
  Age: 50 Year
  Sex: Female

DRUGS (2)
  1. ENBREL [Suspect]
     Active Substance: ETANERCEPT
     Indication: PSORIASIS
     Dosage: 50 MG, 2 TIMES/WK
     Route: 065
  2. ENBREL [Suspect]
     Active Substance: ETANERCEPT
     Indication: ARTHRITIS

REACTIONS (12)
  - Hypersensitivity [Unknown]
  - Panic attack [Unknown]
  - Lower respiratory tract infection [Unknown]
  - Asthma [Unknown]
  - Meniscus injury [Unknown]
  - Urinary tract infection [Unknown]
  - Gait disturbance [Unknown]
  - Upper respiratory tract infection [Unknown]
  - Pain in extremity [Unknown]
  - Knee operation [Unknown]
  - Arthritis [Unknown]
  - Injection site bruising [Unknown]
